FAERS Safety Report 5518751-4 (Version None)
Quarter: 2007Q4

REPORT INFORMATION
  Report Type: 
  Country: None (occurrence: None)
  Receive Date: 20071113
  Receipt Date: 20071030
  Transmission Date: 20080405
  Serious: Yes (Death, Other)
  Sender: FDA-Public Use
  Company Number: 2007-03495

PATIENT
  Age: 68 Year
  Weight: 50 kg

DRUGS (6)
  1. VELCADE [Suspect]
     Indication: MULTIPLE MYELOMA
     Dosage: 2.00 MG, INTRAVENOUS
     Route: 042
     Dates: start: 20070703, end: 20070713
  2. ALENDRONATE SODIUM [Concomitant]
  3. ITRIZOLE (ITRACONAZOLE) CAPSULE [Concomitant]
  4. ALLOPURINOL [Concomitant]
  5. OXYCONTIN [Concomitant]
  6. ADALAT [Concomitant]

REACTIONS (2)
  - DISEASE PROGRESSION [None]
  - PLATELET COUNT DECREASED [None]
